FAERS Safety Report 16260290 (Version 39)
Quarter: 2020Q2

REPORT INFORMATION
  Report Type: Spontaneous
  Country: US (occurrence: US)
  Receive Date: 20190501
  Receipt Date: 20200624
  Transmission Date: 20200713
  Serious: Yes (Hospitalization, Other)
  Sender: FDA-Public Use
  Company Number: US-PFIZER INC-2019183767

PATIENT
  Age: 71 Year
  Sex: Female

DRUGS (4)
  1. XELJANZ [Suspect]
     Active Substance: TOFACITINIB CITRATE
     Dosage: 5 MG, UNK
     Route: 048
     Dates: start: 20190420
  2. XELJANZ [Suspect]
     Active Substance: TOFACITINIB CITRATE
     Dosage: 5 MG
     Dates: start: 201904
  3. XELJANZ [Suspect]
     Active Substance: TOFACITINIB CITRATE
     Dosage: 5 MG, 2X/DAY
  4. XELJANZ [Suspect]
     Active Substance: TOFACITINIB CITRATE
     Dosage: 5 MG, 1X/DAY

REACTIONS (37)
  - Road traffic accident [Unknown]
  - Arthralgia [Recovering/Resolving]
  - Stress [Unknown]
  - Aphasia [Unknown]
  - Renal haemorrhage [Unknown]
  - Dysuria [Unknown]
  - Influenza [Unknown]
  - Diarrhoea [Recovering/Resolving]
  - Discomfort [Unknown]
  - Feeding disorder [Unknown]
  - Neck pain [Unknown]
  - Headache [Not Recovered/Not Resolved]
  - Pain in extremity [Unknown]
  - Musculoskeletal stiffness [Unknown]
  - Feeling abnormal [Recovering/Resolving]
  - Abdominal discomfort [Unknown]
  - Insomnia [Recovering/Resolving]
  - Mobility decreased [Unknown]
  - Chills [Unknown]
  - Fall [Unknown]
  - Depressed mood [Recovering/Resolving]
  - Tenderness [Unknown]
  - Speech disorder [Unknown]
  - Vision blurred [Recovering/Resolving]
  - Presyncope [Unknown]
  - Hypersomnia [Unknown]
  - Bladder pain [Unknown]
  - Fatigue [Recovering/Resolving]
  - Nasopharyngitis [Unknown]
  - Loss of personal independence in daily activities [Unknown]
  - Malaise [Unknown]
  - Product dose omission [Unknown]
  - Decreased appetite [Unknown]
  - Muscle spasms [Recovering/Resolving]
  - Pain [Unknown]
  - Peripheral swelling [Unknown]
  - Arthropathy [Recovering/Resolving]

NARRATIVE: CASE EVENT DATE: 2019
